FAERS Safety Report 10105450 (Version 2)
Quarter: 2015Q1

REPORT INFORMATION
  Report Type: Other
  Country: US (occurrence: US)
  Receive Date: 20140424
  Receipt Date: 20150316
  Transmission Date: 20150720
  Serious: Yes (Hospitalization, Other)
  Sender: FDA-Public Use
  Company Number: US-GSKPPD-2014GSK000537

PATIENT
  Age: 70 Year
  Sex: Male

DRUGS (9)
  1. ALTACE [Concomitant]
     Active Substance: RAMIPRIL
  2. COREG [Concomitant]
     Active Substance: CARVEDILOL
  3. AVANDIA [Suspect]
     Active Substance: ROSIGLITAZONE MALEATE
     Indication: DIABETES MELLITUS
     Dosage: DATES OF AVANDIA USE COULD NOT BE CONFIRMED IN RECORDS REVIEWED.
     Route: 048
  4. METOPROLOL [Concomitant]
     Active Substance: METOPROLOL
  5. PLAVIX [Concomitant]
     Active Substance: CLOPIDOGREL BISULFATE
  6. BUMEX [Concomitant]
     Active Substance: BUMETANIDE
  7. ASPIRIN. [Concomitant]
     Active Substance: ASPIRIN
  8. IMDUR [Concomitant]
     Active Substance: ISOSORBIDE MONONITRATE
  9. LIPITOR [Concomitant]
     Active Substance: ATORVASTATIN CALCIUM

REACTIONS (2)
  - Cardiac failure congestive [Recovered/Resolved]
  - Myocardial infarction [Unknown]

NARRATIVE: CASE EVENT DATE: 20060124
